FAERS Safety Report 8286584-4 (Version None)
Quarter: 2012Q2

REPORT INFORMATION
  Report Type: 
  Country: None (occurrence: None)
  Receive Date: 20120416
  Receipt Date: 20120411
  Transmission Date: 20120825
  Serious: Yes (Hospitalization, Other)
  Sender: FDA-Public Use
  Company Number: US-BAYER-2011-069833

PATIENT
  Age: 17 Year
  Sex: Female
  Weight: 113 kg

DRUGS (11)
  1. YASMIN [Suspect]
     Dosage: UNK
     Dates: start: 20061201, end: 20100101
  2. SEROQUEL [Concomitant]
     Dosage: 100 MG, HS
     Route: 048
     Dates: start: 20081021
  3. ABILIFY [Concomitant]
     Dosage: 15 MG, QD
     Route: 048
     Dates: start: 20081021
  4. PENTASA [Concomitant]
     Dosage: 500 MG, 2X TID
     Route: 048
     Dates: start: 20081021
  5. DICYCLOMINE [Concomitant]
     Dosage: 10 MG, BID
     Route: 048
     Dates: start: 20081021
  6. YASMIN [Suspect]
     Indication: MENSTRUAL DISORDER
     Dosage: UNK
     Dates: start: 20070101
  7. DROSPIRENONE AND ETHINYL ESTRADIOL [Suspect]
     Dosage: UNK
     Dates: start: 20061201, end: 20100101
  8. LAMICTAL [Concomitant]
     Dosage: 25 MG, TID, ONE IN MORNING/TWO AT BEDTIME
     Route: 048
     Dates: start: 20081021
  9. MIRTAZAPINE [Concomitant]
     Dosage: 30 MG, HS
     Route: 048
     Dates: start: 20081021
  10. ZANTAC [Concomitant]
     Dosage: 300 MG, BID
     Route: 048
     Dates: start: 20081021
  11. XANAX [Concomitant]
     Dosage: 0.5 MG, BID
     Route: 048
     Dates: start: 20081021

REACTIONS (4)
  - INJURY [None]
  - PAIN [None]
  - BILIARY DYSKINESIA [None]
  - GALLBLADDER INJURY [None]
